FAERS Safety Report 10008143 (Version 3)
Quarter: 2015Q3

REPORT INFORMATION
  Report Type: Spontaneous
  Country: US (occurrence: US)
  Receive Date: 20140313
  Receipt Date: 20150812
  Transmission Date: 20151125
  Serious: No
  Sender: FDA-Public Use
  Company Number: US-GILEAD-2012-0056933

PATIENT
  Age: 22 Year
  Sex: Male

DRUGS (4)
  1. LETAIRIS [Suspect]
     Active Substance: AMBRISENTAN
     Indication: PULMONARY HYPERTENSION
     Dosage: 10 MG, UNK
     Route: 048
     Dates: start: 20091112
  2. EPOPROSTENOL. [Suspect]
     Active Substance: EPOPROSTENOL
  3. PROSTACYCLIN [Suspect]
     Active Substance: EPOPROSTENOL
  4. LETAIRIS [Suspect]
     Active Substance: AMBRISENTAN
     Indication: UNEVALUABLE EVENT

REACTIONS (12)
  - Erythema [Unknown]
  - Hypersensitivity [Unknown]
  - Hyperhidrosis [Unknown]
  - Migraine [Unknown]
  - Myalgia [Unknown]
  - Sinus disorder [Unknown]
  - Pain [Unknown]
  - Paranasal sinus discomfort [Unknown]
  - Dizziness [Unknown]
  - Pain in jaw [Unknown]
  - Presyncope [Unknown]
  - Flushing [Unknown]
